FAERS Safety Report 5947240-8 (Version None)
Quarter: 2008Q4

REPORT INFORMATION
  Report Type: 
  Country: None (occurrence: None)
  Receive Date: 20081110
  Receipt Date: 20080915
  Transmission Date: 20090506
  Serious: No
  Sender: FDA-Public Use
  Company Number: US-B.I. PHARMACEUTICALS,INC./RIDGEFIELD-2008-BP-14612BP

PATIENT
  Age: 79 Year
  Sex: Female

DRUGS (6)
  1. ZANTAC 150 [Suspect]
     Indication: DYSPEPSIA
     Dosage: 300MG
     Route: 048
     Dates: start: 20080901, end: 20080915
  2. LUMIGAN GGT [Concomitant]
     Indication: GLAUCOMA
  3. SINGULAIR [Concomitant]
     Indication: ASTHMA
  4. HYDROCHLOROTHIAZIDE [Concomitant]
     Indication: BLOOD PRESSURE
  5. DIAZEPAM [Concomitant]
  6. DIPHENHYDRAMINE HCL [Concomitant]
     Indication: SLEEP DISORDER

REACTIONS (1)
  - ABDOMINAL PAIN UPPER [None]
